FAERS Safety Report 7198649-9 (Version None)
Quarter: 2010Q4

REPORT INFORMATION
  Report Type: 
  Country: None (occurrence: None)
  Receive Date: 20101227
  Receipt Date: 20091203
  Transmission Date: 20110411
  Serious: No
  Sender: FDA-Public Use
  Company Number: US-ABBOTT-09P-163-0612898-00

PATIENT
  Sex: Male

DRUGS (2)
  1. LUPRON DEPOT [Suspect]
     Indication: PRODUCT USED FOR UNKNOWN INDICATION
     Dates: start: 20080101, end: 20081201
  2. LUPRON DEPOT [Suspect]
     Dates: start: 20091101

REACTIONS (2)
  - HOT FLUSH [None]
  - PROSTATIC SPECIFIC ANTIGEN INCREASED [None]
